FAERS Safety Report 26117412 (Version 2)
Quarter: 2025Q4

REPORT INFORMATION
  Report Type: Report from Study
  Country: EU (occurrence: EU)
  Receive Date: 20251203
  Receipt Date: 20251205
  Transmission Date: 20260118
  Serious: Yes (Other)
  Sender: EMD SERONO INC
  Company Number: EU-Merck Healthcare KGaA-2025060565

PATIENT
  Age: 23 Year
  Sex: Female

DRUGS (1)
  1. MAVENCLAD [Suspect]
     Active Substance: CLADRIBINE
     Indication: Multiple sclerosis
     Dosage: YEAR ONE WEEK ONE THERAPY: TWO TABLETS ON DAYS 1 AND 2 AND ONE TABLET ON DAYS 3 TO 5
     Dates: start: 20251103

REACTIONS (2)
  - Lower respiratory tract infection [Not Recovered/Not Resolved]
  - Skin reaction [Not Recovered/Not Resolved]

NARRATIVE: CASE EVENT DATE: 20251101
